FAERS Safety Report 7599813-7 (Version None)
Quarter: 2011Q3

REPORT INFORMATION
  Report Type: 
  Country: None (occurrence: None)
  Receive Date: 20110711
  Receipt Date: 20110421
  Transmission Date: 20111222
  Serious: No
  Sender: FDA-Public Use
  Company Number: A0924607A

PATIENT
  Sex: Male

DRUGS (1)
  1. REQUIP XL [Suspect]
     Indication: PARKINSON'S DISEASE
     Dosage: 12MG IN THE MORNING
     Route: 065

REACTIONS (1)
  - SOMNOLENCE [None]
